FAERS Safety Report 7825974-8 (Version None)
Quarter: 2011Q4

REPORT INFORMATION
  Report Type: 
  Country: None (occurrence: None)
  Receive Date: 20111019
  Receipt Date: 20111018
  Transmission Date: 20120403
  Serious: Yes (Other)
  Sender: FDA-Public Use
  Company Number: US-ROCHE-1005350

PATIENT
  Age: 64 Year
  Sex: Male
  Weight: 92.3 kg

DRUGS (1)
  1. AVASTIN [Suspect]
     Indication: RENAL CELL CARCINOMA
     Dosage: 10MG/KG IV OVER 30-90 MIN ON DAYS 1 AND 15
     Dates: start: 20080805

REACTIONS (1)
  - LIBIDO DECREASED [None]
